FAERS Safety Report 9463216 (Version 1)
Quarter: 2013Q3

REPORT INFORMATION
  Report Type: Spontaneous
  Country: IN (occurrence: IN)
  Receive Date: 20130818
  Receipt Date: 20130818
  Transmission Date: 20140515
  Serious: Yes (Hospitalization)
  Sender: FDA-Public Use
  Company Number: PHHY2013IN086861

PATIENT
  Age: 58 Year
  Sex: Male

DRUGS (8)
  1. AMLODIPINE [Suspect]
     Dosage: 5 MG, QD
  2. GLYCOPYRROLATE [Concomitant]
     Indication: PREMEDICATION
  3. RANITIDINE [Concomitant]
     Indication: PREMEDICATION
  4. ONDANSETRON [Concomitant]
     Indication: PREMEDICATION
  5. FENTANYL [Concomitant]
     Indication: PREMEDICATION
  6. THIOPENTAL SODIUM [Concomitant]
  7. SUXAMETHONIUM CHLORIDE [Concomitant]
  8. ISOFLURANE [Concomitant]

REACTIONS (3)
  - Metabolic acidosis [Recovering/Resolving]
  - Urine output decreased [Recovering/Resolving]
  - Procedural hypotension [Recovering/Resolving]
